FAERS Safety Report 10711057 (Version 1)
Quarter: 2015Q1

REPORT INFORMATION
  Report Type: Spontaneous
  Country: US (occurrence: US)
  Receive Date: 20150114
  Receipt Date: 20150114
  Transmission Date: 20150721
  Serious: No
  Sender: FDA-Public Use
  Company Number: US-TEVA-534011USA

PATIENT
  Age: 50 Year
  Sex: Male
  Weight: 77 kg

DRUGS (3)
  1. NAPROXEN. [Suspect]
     Active Substance: NAPROXEN
     Indication: PAIN
     Dosage: 2 PILLS/DAY (DOSE NOT PROVIDED)
  2. NUVIGIL [Suspect]
     Active Substance: ARMODAFINIL
     Indication: LETHARGY
     Dosage: 150 MILLIGRAM DAILY; FREQUENCY NOT PROVIDED
     Route: 048
     Dates: start: 2014
  3. CELEBREX [Suspect]
     Active Substance: CELECOXIB
     Indication: INFLAMMATION
     Dosage: 100 MILLIGRAM DAILY;
     Route: 048
     Dates: start: 201402

REACTIONS (4)
  - Arthritis [Not Recovered/Not Resolved]
  - Back pain [Not Recovered/Not Resolved]
  - Drug ineffective [Unknown]
  - Pain [Not Recovered/Not Resolved]

NARRATIVE: CASE EVENT DATE: 2014
